FAERS Safety Report 18233072 (Version 1)
Quarter: 2020Q3

REPORT INFORMATION
  Report Type: Spontaneous
  Country: US (occurrence: US)
  Receive Date: 20200904
  Receipt Date: 20200904
  Transmission Date: 20201103
  Serious: No
  Sender: FDA-Public Use
  Company Number: US-SA-2020SA240405

PATIENT

DRUGS (1)
  1. DUPIXENT [Suspect]
     Active Substance: DUPILUMAB
     Indication: ILLNESS
     Dosage: 2 DF, QOW
     Route: 058
     Dates: start: 202008

REACTIONS (3)
  - Product use in unapproved indication [Unknown]
  - Drug ineffective for unapproved indication [Unknown]
  - Product use issue [Unknown]

NARRATIVE: CASE EVENT DATE: 2020
